FAERS Safety Report 4866852-6 (Version None)
Quarter: 2005Q4

REPORT INFORMATION
  Report Type: 
  Country: None (occurrence: None)
  Receive Date: 20051222
  Receipt Date: 20051208
  Transmission Date: 20060501
  Serious: Yes (Death, Hospitalization)
  Sender: FDA-Public Use
  Company Number: HQWYE917009DEC05

PATIENT
  Age: 77 Year
  Sex: Female

DRUGS (4)
  1. INIPOMP (PANTOPRAZOLE, INJECTION) [Suspect]
     Indication: CHOLECYSTITIS
     Dosage: 40 MG 1X PER 1 DAY INTRAVENOUS
     Route: 042
     Dates: start: 20051005, end: 20051007
  2. VISCERALGINE (TIEMONIUM, MESILATE) [Suspect]
     Indication: PAIN
     Dosage: 5 MG 1X PER 1 DAY INTRAVENOUS
     Route: 042
     Dates: start: 20051005, end: 20051007
  3. LOVENOX [Concomitant]
  4. ACETAMINOPHEN [Concomitant]

REACTIONS (2)
  - LEUKOPENIA [None]
  - SEPTIC SHOCK [None]
